FAERS Safety Report 10451323 (Version 3)
Quarter: 2014Q4

REPORT INFORMATION
  Report Type: Report from Study
  Country: BR (occurrence: BR)
  Receive Date: 20140912
  Receipt Date: 20141017
  Transmission Date: 20150528
  Serious: Yes (Death, Life-Threatening, Hospitalization, Other)
  Sender: FDA-Public Use
  Company Number: BR-ASTELLAS-2014US012483

PATIENT
  Age: 79 Year
  Sex: Male

DRUGS (5)
  1. ATENOLOL. [Concomitant]
     Active Substance: ATENOLOL
     Indication: HYPERTENSION
     Route: 048
  2. SIMVASTATIN. [Concomitant]
     Active Substance: SIMVASTATIN
     Indication: HYPERCHOLESTEROLAEMIA
     Route: 048
  3. ENZALUTAMIDE [Suspect]
     Active Substance: ENZALUTAMIDE
     Indication: PROSTATE CANCER
     Route: 048
     Dates: start: 20140715, end: 20140908
  4. RASILEZ HCT [Concomitant]
     Active Substance: ALISKIREN\HYDROCHLOROTHIAZIDE
     Indication: HYPERTENSION
     Route: 048
  5. GALVUS [Concomitant]
     Active Substance: VILDAGLIPTIN
     Indication: DIABETES MELLITUS
     Route: 048

REACTIONS (2)
  - Hypovolaemic shock [Fatal]
  - Malignant neoplasm progression [Fatal]

NARRATIVE: CASE EVENT DATE: 20140908
